FAERS Safety Report 24644442 (Version 1)
Quarter: 2024Q4

REPORT INFORMATION
  Report Type: Spontaneous
  Country: US (occurrence: US)
  Receive Date: 20241121
  Receipt Date: 20241121
  Transmission Date: 20250114
  Serious: No
  Sender: SANOFI AVENTIS
  Company Number: US-SA-2024SA338884

PATIENT
  Age: 49 Year
  Sex: Female

DRUGS (14)
  1. DUPIXENT [Suspect]
     Active Substance: DUPILUMAB
     Indication: Dermatitis atopic
     Dosage: INJECT 300 MG UNDER THE SKIN (SUBCUTANEOUS INJECTION) EVERY 2 WEEKS
     Route: 058
     Dates: start: 20211202
  2. AZITHROMYCIN [Concomitant]
     Active Substance: AZITHROMYCIN
  3. CELEBREX [Concomitant]
     Active Substance: CELECOXIB
  4. BENZOYL PEROXIDE\CLINDAMYCIN PHOSPHATE [Concomitant]
     Active Substance: BENZOYL PEROXIDE\CLINDAMYCIN PHOSPHATE
  5. FLUCONAZOLE [Concomitant]
     Active Substance: FLUCONAZOLE
  6. IBUPROFEN [Concomitant]
     Active Substance: IBUPROFEN
  7. LARIN 1/20 [Concomitant]
     Active Substance: ETHINYL ESTRADIOL\NORETHINDRONE ACETATE
  8. LIDOCAINE HYDROCHLORIDE [Concomitant]
     Active Substance: LIDOCAINE HYDROCHLORIDE
  9. ONEXTON [Concomitant]
     Active Substance: BENZOYL PEROXIDE\CLINDAMYCIN PHOSPHATE
  10. SPIRONOLACTONE [Concomitant]
     Active Substance: SPIRONOLACTONE
  11. TACROLIMUS [Concomitant]
     Active Substance: TACROLIMUS
  12. TRAMADOL HCL [Concomitant]
     Active Substance: TRAMADOL HYDROCHLORIDE
  13. VALACYCLOVIR HYDROCHLORIDE [Concomitant]
     Active Substance: VALACYCLOVIR HYDROCHLORIDE
  14. WEGOVY [Concomitant]
     Active Substance: SEMAGLUTIDE

REACTIONS (1)
  - Oral herpes [Unknown]
